FAERS Safety Report 14280077 (Version 1)
Quarter: 2017Q4

REPORT INFORMATION
  Report Type: Spontaneous
  Country: PL (occurrence: PL)
  Receive Date: 20171213
  Receipt Date: 20171213
  Transmission Date: 20180321
  Serious: Yes (Life-Threatening, Hospitalization, Disabling, Other)
  Sender: FDA-Public Use
  Company Number: PL-SUN PHARMACEUTICAL INDUSTRIES LTD-2017RR-156836

PATIENT
  Age: 60 Year
  Sex: Female

DRUGS (22)
  1. GEMCITABINE [Suspect]
     Active Substance: GEMCITABINE\GEMCITABINE HYDROCHLORIDE
     Dosage: 1960 MG, CONCENTRATE: 100MG/25ML; 1 PHIAL
     Route: 042
  2. PEMBROLIZUMAB. [Suspect]
     Active Substance: PEMBROLIZUMAB
     Indication: TRIPLE NEGATIVE BREAST CANCER
     Dosage: 200 MG, EVERY 4 WEEKS, 5TH CYCLE
     Route: 042
  3. GEMCITABINE [Suspect]
     Active Substance: GEMCITABINE\GEMCITABINE HYDROCHLORIDE
     Dosage: 1960 MG, CONCENTRATE: 100MG/25ML; 1 PHIAL
     Route: 042
  4. PEMBROLIZUMAB. [Suspect]
     Active Substance: PEMBROLIZUMAB
     Indication: METASTASES TO BONE
     Dosage: 200 MG, Q3W, FIRST CYCLE
     Route: 042
     Dates: start: 20170717
  5. PEMBROLIZUMAB. [Suspect]
     Active Substance: PEMBROLIZUMAB
     Indication: METASTASES TO LUNG
     Dosage: 200 MG, EVERY 4 WEEKS, 4TH CYCLE
     Route: 042
  6. PEMBROLIZUMAB. [Suspect]
     Active Substance: PEMBROLIZUMAB
     Dosage: 200 MG, Q3W, THIRD CYCLE
     Route: 042
     Dates: start: 20170828
  7. PEMBROLIZUMAB. [Suspect]
     Active Substance: PEMBROLIZUMAB
     Dosage: 200 MG, Q3W, SECOND CYCLE
     Route: 042
     Dates: start: 20170807
  8. ONDANSETRON [Concomitant]
     Active Substance: ONDANSETRON
     Dosage: 4 MG, STRENGTH: 4MG/2ML - PACKAGE-5 AM P.2ML
     Route: 042
  9. DEXAVEN [Concomitant]
     Active Substance: DEXAMETHASONE
     Indication: PROPHYLAXIS
     Dosage: 4 MG, UNK
     Route: 042
  10. DEXAVEN [Concomitant]
     Active Substance: DEXAMETHASONE
     Dosage: 4 MG, UNK
     Route: 042
  11. CARBOMEDAC [Concomitant]
     Active Substance: CARBOPLATIN
     Dosage: 255 MG, STRENGTH ALSO REPORTED AS : AUC 2-255MG; 1 PHIAL
     Route: 042
  12. DEXAVEN [Concomitant]
     Active Substance: DEXAMETHASONE
     Dosage: 4 MG, UNK
     Route: 042
  13. MAGNESIUM SULFATE. [Concomitant]
     Active Substance: MAGNESIUM SULFATE
     Dosage: 1 AMPULE, UNK
     Route: 065
  14. CARBOMEDAC [Concomitant]
     Active Substance: CARBOPLATIN
     Dosage: 255 MG, STRENGTH ALSO REPORTED AS : AUC 2-255MG; 1 PHIAL
     Route: 042
  15. MAGNESIUM SULFATE. [Concomitant]
     Active Substance: MAGNESIUM SULFATE
     Indication: PROPHYLAXIS
     Dosage: 1 AMPULE, UNK
     Route: 065
  16. MAGNESIUM SULFATE. [Concomitant]
     Active Substance: MAGNESIUM SULFATE
     Dosage: 1 AMPULE, UNK
     Route: 065
  17. FAYTON [Concomitant]
     Indication: PROPHYLAXIS
     Dosage: 4 MG, STRENGTH: 4MG/5ML; 1 PHIAL
     Route: 042
  18. GEMCITABINE [Suspect]
     Active Substance: GEMCITABINE\GEMCITABINE HYDROCHLORIDE
     Indication: TRIPLE NEGATIVE BREAST CANCER
     Dosage: 1960 MG, CONCENTRATE: 100MG/25ML; 1 PHIAL
     Route: 065
  19. PEMBROLIZUMAB. [Suspect]
     Active Substance: PEMBROLIZUMAB
     Dosage: 200 MG, EVERY 4 WEEKS, 6TH CYCLE
     Route: 042
  20. ONDANSETRON [Concomitant]
     Active Substance: ONDANSETRON
     Indication: PROPHYLAXIS
     Dosage: 4 MG, STRENGTH: 4MG/2ML - PACKAGE-5 AM P.2ML
     Route: 042
  21. ONDANSETRON [Concomitant]
     Active Substance: ONDANSETRON
     Dosage: 4 MG, STRENGTH: 4MG/2ML - PACKAGE-5 AM P.2ML
     Route: 042
  22. CARBOMEDAC [Concomitant]
     Active Substance: CARBOPLATIN
     Indication: TRIPLE NEGATIVE BREAST CANCER
     Dosage: 255 MG, STRENGTH ALSO REPORTED AS : AUC 2-255MG; 1 PHIAL
     Route: 042

REACTIONS (10)
  - Off label use [Unknown]
  - Rash generalised [Recovered/Resolved]
  - Neutrophil count decreased [Unknown]
  - Pyrexia [Recovered/Resolved]
  - Metastases to bone [Unknown]
  - Rash [Recovered/Resolved]
  - Diarrhoea [Not Recovered/Not Resolved]
  - Rash [Recovered/Resolved]
  - Inappropriate schedule of drug administration [Unknown]
  - Skin discolouration [Recovering/Resolving]

NARRATIVE: CASE EVENT DATE: 2017
